FAERS Safety Report 22882477 (Version 3)
Quarter: 2023Q4

REPORT INFORMATION
  Report Type: Report from Study
  Country: MX (occurrence: MX)
  Receive Date: 20230830
  Receipt Date: 20231028
  Transmission Date: 20240110
  Serious: Yes (Hospitalization, Other)
  Sender: FDA-Public Use
  Company Number: MX-ABBVIE-5387258

PATIENT
  Age: 77 Year
  Sex: Male

DRUGS (1)
  1. UPADACITINIB [Suspect]
     Active Substance: UPADACITINIB
     Indication: Rheumatoid arthritis
     Dosage: FORM STRENGTH: 15MG?FREQUENCY TEXT: DAILY?LAST ADMIN DATE:2023
     Route: 048
     Dates: start: 20221208

REACTIONS (4)
  - Surgery [Unknown]
  - Pneumonia [Unknown]
  - Staphylococcal infection [Not Recovered/Not Resolved]
  - Hernia [Unknown]

NARRATIVE: CASE EVENT DATE: 20230801
